FAERS Safety Report 5917904-0 (Version None)
Quarter: 2008Q4

REPORT INFORMATION
  Report Type: 
  Country: None (occurrence: None)
  Receive Date: 20081014
  Receipt Date: 20071001
  Transmission Date: 20090506
  Serious: No
  Sender: FDA-Public Use
  Company Number: US-ABBOTT-08P-163-0443683-00

PATIENT
  Sex: Female
  Weight: 46.308 kg

DRUGS (2)
  1. KALETRA [Suspect]
     Indication: HIV INFECTION
     Dates: start: 20020201
  2. TRIZIVIR [Concomitant]
     Indication: HIV INFECTION
     Dates: start: 20020201

REACTIONS (1)
  - FATIGUE [None]
